FAERS Safety Report 16872428 (Version 2)
Quarter: 2019Q4

REPORT INFORMATION
  Report Type: Spontaneous
  Country: US (occurrence: US)
  Receive Date: 20191001
  Receipt Date: 20191112
  Transmission Date: 20200122
  Serious: No
  Sender: FDA-Public Use
  Company Number: US-ASTRAZENECA-2019SF35459

PATIENT
  Sex: Male
  Weight: 83.9 kg

DRUGS (8)
  1. BYDUREON BCISE [Suspect]
     Active Substance: EXENATIDE
     Indication: TYPE 2 DIABETES MELLITUS
     Route: 058
     Dates: start: 2019
  2. SERTRALINE [Concomitant]
     Active Substance: SERTRALINE HYDROCHLORIDE
     Indication: ANXIETY
     Route: 048
  3. BABY ASPIRIN [Concomitant]
     Active Substance: ASPIRIN
     Indication: CARDIAC DISORDER
     Route: 048
  4. TEGRADOL [Concomitant]
     Indication: TRIGEMINAL NEURALGIA
     Route: 048
  5. BUSPIRONE [Concomitant]
     Active Substance: BUSPIRONE HYDROCHLORIDE
     Indication: DEPRESSION
     Route: 048
  6. GABAPENTIN. [Concomitant]
     Active Substance: GABAPENTIN
     Indication: TRIGEMINAL NEURALGIA
     Dosage: 1 CAPSULE IN THE MORNING, 1 CAPSULE AT LUNCH AND 2 AT BEDTIME
     Route: 048
  7. LISINOPRIL. [Suspect]
     Active Substance: LISINOPRIL
     Indication: BLOOD PRESSURE MEASUREMENT
     Route: 048
  8. GABAPENTIN. [Concomitant]
     Active Substance: GABAPENTIN
     Indication: TRIGEMINAL NEURALGIA
     Dosage: 2 CAPSULES OF 300 MG DURING THE DAY
     Route: 048

REACTIONS (10)
  - Somnolence [Unknown]
  - Wrong technique in device usage process [Unknown]
  - Pain in extremity [Unknown]
  - Device leakage [Unknown]
  - Neck pain [Unknown]
  - Gastrooesophageal reflux disease [Unknown]
  - Intentional device misuse [Unknown]
  - Anxiety [Unknown]
  - Depression [Unknown]
  - Chest pain [Unknown]

NARRATIVE: CASE EVENT DATE: 2019
